FAERS Safety Report 5657089-1 (Version None)
Quarter: 2008Q1

REPORT INFORMATION
  Report Type: 
  Country: None (occurrence: None)
  Receive Date: 20080310
  Receipt Date: 20080228
  Transmission Date: 20080703
  Serious: Yes (Other)
  Sender: FDA-Public Use
  Company Number: US-JNJFOC-20080301593

PATIENT
  Sex: Female
  Weight: 54.43 kg

DRUGS (1)
  1. TYLENOL W/ CODEINE NO. 3 [Suspect]
     Indication: DRUG USE FOR UNKNOWN INDICATION
     Dosage: 30/300MG
     Route: 048

REACTIONS (1)
  - DYSPNOEA [None]
